FAERS Safety Report 12170509 (Version 1)
Quarter: 2016Q1

REPORT INFORMATION
  Report Type: Spontaneous
  Country: PL (occurrence: PL)
  Receive Date: 20160311
  Receipt Date: 20160311
  Transmission Date: 20160526
  Serious: Yes (Death, Hospitalization)
  Sender: FDA-Public Use
  Company Number: PL-ALKEM-001515

PATIENT
  Age: 54 Year
  Sex: Male

DRUGS (1)
  1. METFORMIN [Suspect]
     Active Substance: METFORMIN HYDROCHLORIDE
     Dosage: 100 TABLET

REACTIONS (4)
  - Completed suicide [Fatal]
  - Multiple organ dysfunction syndrome [Fatal]
  - Metabolic acidosis [Fatal]
  - Intentional overdose [Fatal]
